FAERS Safety Report 4874105-5 (Version None)
Quarter: 2006Q1

REPORT INFORMATION
  Report Type: 
  Country: None (occurrence: None)
  Receive Date: 20060104
  Receipt Date: 20051218
  Transmission Date: 20060701
  Serious: Yes (Other)
  Sender: FDA-Public Use
  Company Number: 2005170141

PATIENT
  Age: 38 Year
  Sex: Male

DRUGS (9)
  1. VIAGRA [Suspect]
     Indication: ERECTILE DYSFUNCTION
     Dates: start: 20051101, end: 20050101
  2. ACETAMINOPHEN [Concomitant]
  3. SEROQUEL [Concomitant]
  4. COGENTIN [Concomitant]
  5. HALDOL [Concomitant]
  6. CELEBREX [Concomitant]
  7. HYDROCHLOROTHIAZIDE [Concomitant]
  8. PRILOSEC [Concomitant]
  9. ALL OTHER THERAPEUTIC PRODUCTS (ALL OTHER THERAPEUTIC PRODUCTS) [Concomitant]

REACTIONS (5)
  - DRUG INEFFECTIVE [None]
  - FEELING ABNORMAL [None]
  - NEPHROLITHIASIS [None]
  - OESOPHAGEAL STENOSIS [None]
  - WEIGHT INCREASED [None]
